FAERS Safety Report 4704477-3 (Version None)
Quarter: 2005Q2

REPORT INFORMATION
  Report Type: 
  Country: None (occurrence: None)
  Receive Date: 20050630
  Receipt Date: 20040212
  Transmission Date: 20051028
  Serious: Yes (Hospitalization)
  Sender: FDA-Public Use
  Company Number: NO-AMGEN-US066896

PATIENT
  Sex: Female

DRUGS (6)
  1. ENBREL [Suspect]
     Indication: RHEUMATOID ARTHRITIS
     Route: 058
     Dates: start: 20010601, end: 20031220
  2. ARAVA [Suspect]
     Dates: start: 20031001, end: 20031223
  3. PREDNISOLONE [Concomitant]
  4. LEVAXIN [Concomitant]
  5. COZAAR [Concomitant]
  6. METHENAMINE HIPPURATE [Concomitant]

REACTIONS (10)
  - BLOOD THYROID STIMULATING HORMONE DECREASED [None]
  - C-REACTIVE PROTEIN INCREASED [None]
  - COMPLEMENT FACTOR C4 INCREASED [None]
  - LIVEDO RETICULARIS [None]
  - LOSS OF CONTROL OF LEGS [None]
  - MUSCLE SPASTICITY [None]
  - OEDEMA [None]
  - POLYNEUROPATHY [None]
  - THYROXINE FREE INCREASED [None]
  - VITAMIN B12 INCREASED [None]
